FAERS Safety Report 8990237 (Version 2)
Quarter: 2013Q1

REPORT INFORMATION
  Report Type: Report from Study
  Country: US (occurrence: US)
  Receive Date: 20121228
  Receipt Date: 20130201
  Transmission Date: 20140127
  Serious: Yes (Hospitalization)
  Sender: FDA-Public Use
  Company Number: US-US-EMD SERONO, INC.-7183913

PATIENT
  Age: 72 Year
  Sex: Female

DRUGS (2)
  1. REBIF [Suspect]
     Indication: PRODUCT USED FOR UNKNOWN INDICATION
     Route: 058
     Dates: start: 20120716
  2. TYLENOL [Concomitant]
     Indication: PREMEDICATION

REACTIONS (6)
  - Renal failure [Recovered/Resolved]
  - Asthenia [Unknown]
  - Infection [Recovered/Resolved]
  - Cough [Unknown]
  - Injection site nodule [Unknown]
  - Injection site bruising [Unknown]
